FAERS Safety Report 6821140-3 (Version None)
Quarter: 2010Q3

REPORT INFORMATION
  Report Type: 
  Country: None (occurrence: None)
  Receive Date: 20100707
  Receipt Date: 20080303
  Transmission Date: 20110219
  Serious: No
  Sender: FDA-Public Use
  Company Number: US-PFIZER INC-2008020179

PATIENT
  Sex: Female

DRUGS (1)
  1. ZOLOFT [Suspect]

REACTIONS (7)
  - DRY EYE [None]
  - DRY MOUTH [None]
  - EYE DISORDER [None]
  - EYE PAIN [None]
  - PHOTOPHOBIA [None]
  - SINUSITIS [None]
  - VISUAL IMPAIRMENT [None]
